FAERS Safety Report 8685404 (Version 3)
Quarter: 2013Q1

REPORT INFORMATION
  Report Type: Report from Study
  Country: JP (occurrence: JP)
  Receive Date: 20120726
  Receipt Date: 20130104
  Transmission Date: 20140127
  Serious: Yes (Other)
  Sender: FDA-Public Use
  Company Number: JP-JNJFOC-20120710623

PATIENT
  Age: 75 Year
  Sex: Female
  Weight: 52 kg

DRUGS (20)
  1. SIMPONI [Suspect]
     Indication: RHEUMATOID ARTHRITIS
     Route: 058
     Dates: start: 20120711, end: 20120711
  2. SIMPONI [Suspect]
     Indication: RHEUMATOID ARTHRITIS
     Route: 058
     Dates: start: 20120613
  3. SIMPONI [Suspect]
     Indication: RHEUMATOID ARTHRITIS
     Route: 058
     Dates: start: 20120418
  4. SIMPONI [Suspect]
     Indication: RHEUMATOID ARTHRITIS
     Route: 058
     Dates: start: 20120516
  5. METHOTREXATE [Suspect]
     Indication: RHEUMATOID ARTHRITIS
     Route: 065
     Dates: end: 20120711
  6. LOXOPROFEN SODIUM [Concomitant]
     Indication: RHEUMATOID ARTHRITIS
  7. PREDONINE [Concomitant]
     Route: 048
     Dates: start: 20120803, end: 20120819
  8. PREDONINE [Concomitant]
     Route: 048
     Dates: start: 20120820, end: 20120902
  9. PREDONINE [Concomitant]
     Route: 048
     Dates: start: 20120727, end: 20120802
  10. PREDONINE [Concomitant]
     Route: 048
     Dates: start: 20120720, end: 20120726
  11. PREDONINE [Concomitant]
     Route: 048
     Dates: start: 20120903
  12. FOLIAMIN [Concomitant]
     Indication: PROPHYLAXIS
  13. NIFEDIPINE [Concomitant]
     Indication: RHEUMATOID ARTHRITIS
     Route: 048
  14. OLMETEC [Concomitant]
     Indication: RHEUMATOID ARTHRITIS
     Route: 048
  15. CALFINA [Concomitant]
     Indication: RHEUMATOID ARTHRITIS
     Route: 048
  16. MERISLON [Concomitant]
     Indication: RHEUMATOID ARTHRITIS
     Route: 048
  17. LOCHOL [Concomitant]
     Indication: RHEUMATOID ARTHRITIS
     Route: 048
  18. MYSLEE [Concomitant]
     Indication: RHEUMATOID ARTHRITIS
     Route: 048
  19. TOUCHRON [Concomitant]
     Indication: RHEUMATOID ARTHRITIS
     Route: 061
  20. YAKUBAN [Concomitant]
     Indication: RHEUMATOID ARTHRITIS
     Route: 061

REACTIONS (1)
  - Interstitial lung disease [Recovering/Resolving]
